FAERS Safety Report 18650845 (Version 2)
Quarter: 2020Q4

REPORT INFORMATION
  Report Type: Spontaneous
  Country: JP (occurrence: JP)
  Receive Date: 20201222
  Receipt Date: 20201230
  Transmission Date: 20210114
  Serious: Yes (Death, Other)
  Sender: FDA-Public Use
  Company Number: JP-PURDUE-USA-2020-0191390

PATIENT
  Age: 64 Year
  Sex: Male

DRUGS (2)
  1. OXINORM [OXYCODONE HYDROCHLORIDE] [Suspect]
     Active Substance: OXYCODONE HYDROCHLORIDE
     Dosage: UNK
     Route: 065
  2. OXINORM [OXYCODONE HYDROCHLORIDE] [Suspect]
     Active Substance: OXYCODONE HYDROCHLORIDE
     Indication: PRODUCT USED FOR UNKNOWN INDICATION
     Dosage: UNK
     Route: 065

REACTIONS (4)
  - Myocardial infarction [Fatal]
  - Chest pain [Fatal]
  - Delirium [Not Recovered/Not Resolved]
  - Arrhythmia [Fatal]

NARRATIVE: CASE EVENT DATE: 20201026
